FAERS Safety Report 8918581 (Version 1)
Quarter: 2012Q4

REPORT INFORMATION
  Report Type: 
  Country: US (occurrence: US)
  Receive Date: 20121120
  Receipt Date: 20121120
  Transmission Date: 20130627
  Serious: No
  Sender: FDA-Public Use
  Company Number: US-ASTRAZENECA-2012SE19270

PATIENT
  Age: 60 Year
  Sex: Male

DRUGS (11)
  1. NEXIUM [Suspect]
     Route: 048
  2. TOPROL [Suspect]
     Route: 048
  3. METFORMIN [Concomitant]
  4. GLIPIZIDE [Concomitant]
  5. PRAVASTATIN [Concomitant]
  6. GEMFIBROZIL [Concomitant]
  7. ENALAPRIL [Concomitant]
  8. HYDROCHLOROTHIAZIDE [Concomitant]
  9. CARBAMAZEPINE [Concomitant]
  10. CALCIUM [Concomitant]
  11. ASPIRIN [Concomitant]

REACTIONS (4)
  - Diabetes mellitus [Unknown]
  - Blood pressure increased [Unknown]
  - Blood glucose increased [Unknown]
  - Intentional drug misuse [Unknown]
